FAERS Safety Report 23321888 (Version 1)
Quarter: 2023Q4

REPORT INFORMATION
  Report Type: Spontaneous
  Country: US (occurrence: US)
  Receive Date: 20231220
  Receipt Date: 20231220
  Transmission Date: 20240109
  Serious: Yes (Other)
  Sender: FDA-Public Use
  Company Number: US-SANDOZ-SDZ2023US069969

PATIENT
  Age: 37 Year
  Sex: Male

DRUGS (1)
  1. DUREZOL [Suspect]
     Active Substance: DIFLUPREDNATE
     Indication: Eye inflammation
     Dosage: UNK
     Route: 047

REACTIONS (3)
  - Cataract [Unknown]
  - Vitreous floaters [Recovering/Resolving]
  - Eye inflammation [Recovering/Resolving]
